FAERS Safety Report 8167658-5 (Version None)
Quarter: 2012Q1

REPORT INFORMATION
  Report Type: 
  Country: None (occurrence: None)
  Receive Date: 20120227
  Receipt Date: 20120220
  Transmission Date: 20120608
  Serious: Yes (Death, Other)
  Sender: FDA-Public Use
  Company Number: GB-ROCHE-1014735

PATIENT
  Sex: Female

DRUGS (14)
  1. TIOTROPIUM [Concomitant]
  2. RAMIPRIL [Concomitant]
  3. LUCENTIS [Suspect]
     Indication: AGE-RELATED MACULAR DEGENERATION
     Route: 050
     Dates: start: 20091214, end: 20100429
  4. SULFASALAZINE [Concomitant]
  5. ACETAMINOPHEN [Concomitant]
  6. VENLAFAXINE [Concomitant]
  7. RANITIDINE [Concomitant]
  8. HYPROMELLOSE [Concomitant]
  9. VALPROATE SODIUM [Concomitant]
  10. CETIRIZINE HCL [Concomitant]
  11. ALBUTEROL SULFATE AUTOHALER [Concomitant]
  12. LACTULOSE [Concomitant]
  13. ALBUTEROL SULFATE AUTOHALER [Concomitant]
  14. IVABRADINE [Concomitant]

REACTIONS (5)
  - HYPERTENSION [None]
  - DEATH [None]
  - RHEUMATOID ARTHRITIS [None]
  - GLAUCOMA [None]
  - CHRONIC OBSTRUCTIVE PULMONARY DISEASE [None]
